FAERS Safety Report 12935229 (Version 1)
Quarter: 2016Q4

REPORT INFORMATION
  Report Type: Spontaneous
  Country: US (occurrence: US)
  Receive Date: 20161114
  Receipt Date: 20161114
  Transmission Date: 20170207
  Serious: No
  Sender: FDA-Public Use
  Company Number: US-JAZZ-JPI-P-032156

PATIENT
  Age: 48 Year
  Sex: Female
  Weight: 55.46 kg

DRUGS (3)
  1. XYREM [Suspect]
     Active Substance: SODIUM OXYBATE
     Indication: FIBROMYALGIA
     Dosage: 3 G, BID
     Route: 048
     Dates: start: 201112, end: 201202
  2. XYREM [Suspect]
     Active Substance: SODIUM OXYBATE
     Dosage: 4 G, BID
     Route: 048
     Dates: start: 201202
  3. UNSPECIFIED DRUG [Concomitant]
     Active Substance: UNSPECIFIED INGREDIENT

REACTIONS (6)
  - Thyroiditis [Not Recovered/Not Resolved]
  - Dysphonia [Not Recovered/Not Resolved]
  - Gallbladder disorder [Recovered/Resolved]
  - Thyroid mass [Not Recovered/Not Resolved]
  - Tachycardia [Recovered/Resolved]
  - Tremor [Not Recovered/Not Resolved]

NARRATIVE: CASE EVENT DATE: 201210
